FAERS Safety Report 13000289 (Version 1)
Quarter: 2016Q4

REPORT INFORMATION
  Report Type: Spontaneous
  Country: BE (occurrence: BE)
  Receive Date: 20161206
  Receipt Date: 20161206
  Transmission Date: 20170207
  Serious: Yes (Other)
  Sender: FDA-Public Use
  Company Number: BE-ROCHE-1862658

PATIENT
  Sex: Male
  Weight: 77 kg

DRUGS (1)
  1. VALCYTE [Suspect]
     Active Substance: VALGANCICLOVIR HYDROCHLORIDE
     Indication: CYTOMEGALOVIRUS INFECTION
     Route: 065
     Dates: start: 2016

REACTIONS (18)
  - Pyrexia [Unknown]
  - Weight decreased [Unknown]
  - Nervous system disorder [Unknown]
  - Cough [Unknown]
  - Rash [Unknown]
  - Urogenital disorder [Unknown]
  - Pulmonary pain [Unknown]
  - Gastrointestinal disorder [Unknown]
  - Chest pain [Unknown]
  - Haemoptysis [Unknown]
  - Lymphadenopathy [Unknown]
  - Oedema [Unknown]
  - Dyspnoea exertional [Unknown]
  - Malaise [Unknown]
  - Hyperhidrosis [Unknown]
  - Angina pectoris [Unknown]
  - Palpitations [Unknown]
  - Dyspnoea [Unknown]
